FAERS Safety Report 13299820 (Version 7)
Quarter: 2020Q1

REPORT INFORMATION
  Report Type: Report from Study
  Country: US (occurrence: US)
  Receive Date: 20170306
  Receipt Date: 20200212
  Transmission Date: 20200409
  Serious: Yes (Hospitalization, Other)
  Sender: FDA-Public Use
  Company Number: US-ACTELION-A-NJ2017-150572

PATIENT
  Age: 51 Year
  Sex: Female
  Weight: 58.96 kg

DRUGS (10)
  1. ADVAIR HFA [Concomitant]
     Active Substance: FLUTICASONE PROPIONATE\SALMETEROL XINAFOATE
  2. SODIUM BICARBONATE. [Concomitant]
     Active Substance: SODIUM BICARBONATE
  3. OPSUMIT [Suspect]
     Active Substance: MACITENTAN
     Indication: PULMONARY ARTERIAL HYPERTENSION
     Dosage: 10 MG, QD
     Route: 048
     Dates: start: 20160317
  4. UROCIT [Concomitant]
  5. ACTEMRA [Concomitant]
     Active Substance: TOCILIZUMAB
  6. FUROSEMIDE. [Concomitant]
     Active Substance: FUROSEMIDE
  7. ADEMPAS [Concomitant]
     Active Substance: RIOCIGUAT
  8. FOLIC ACID. [Concomitant]
     Active Substance: FOLIC ACID
  9. ZOLPIDEM [Concomitant]
     Active Substance: ZOLPIDEM TARTRATE
  10. CALCIUM [Concomitant]
     Active Substance: CALCIUM

REACTIONS (7)
  - Nausea [Unknown]
  - Dyspnoea [Unknown]
  - Influenza [Unknown]
  - Dysphagia [Unknown]
  - Gastroenteritis viral [Recovered/Resolved]
  - Product dose omission [Recovered/Resolved]
  - Chemotherapy [Unknown]

NARRATIVE: CASE EVENT DATE: 201902
